FAERS Safety Report 7374511-3 (Version None)
Quarter: 2011Q1

REPORT INFORMATION
  Report Type: 
  Country: None (occurrence: None)
  Receive Date: 20110325
  Receipt Date: 20100707
  Transmission Date: 20110831
  Serious: No
  Sender: FDA-Public Use
  Company Number: US-MYLANLABS-2009S1016168

PATIENT
  Sex: Female

DRUGS (2)
  1. FENTANYL-100 [Suspect]
     Indication: PAIN
     Dosage: Q 72 HOURS
     Route: 062
     Dates: start: 20090913, end: 20090914
  2. FENTANYL-100 [Suspect]
     Indication: ARTHRITIS
     Dosage: Q 72 HOURS
     Route: 062
     Dates: start: 20090913, end: 20090914

REACTIONS (3)
  - MALAISE [None]
  - NAUSEA [None]
  - BLOOD PRESSURE INCREASED [None]
